FAERS Safety Report 5670180-9 (Version None)
Quarter: 2008Q1

REPORT INFORMATION
  Report Type: 
  Country: None (occurrence: None)
  Receive Date: 20080312
  Receipt Date: 20080228
  Transmission Date: 20080703
  Serious: Yes (Other)
  Sender: FDA-Public Use
  Company Number: 167-21880-08021649

PATIENT

DRUGS (1)
  1. REVLIMID (LENALIDOMIDE) (CAPSULES) [Suspect]
     Indication: MULTIPLE MYELOMA
     Dosage: ORAL
     Route: 048

REACTIONS (1)
  - NEUROTOXICITY [None]
